FAERS Safety Report 4496403-X (Version None)
Quarter: 2004Q4

REPORT INFORMATION
  Report Type: 
  Country: None (occurrence: None)
  Receive Date: 20041104
  Receipt Date: 20041026
  Transmission Date: 20050328
  Serious: Yes (Death, Hospitalization)
  Sender: FDA-Public Use
  Company Number: US-2004-031028

PATIENT
  Age: 57 Year
  Sex: Female

DRUGS (4)
  1. BETASERON [Suspect]
     Indication: MULTIPLE SCLEROSIS
     Dosage: 8 MIU, EVERY 2D, SUBCUTANEOUS
     Route: 058
     Dates: start: 20020916, end: 20040815
  2. ANTIHYPERTENSIVES [Concomitant]
  3. ANTI-DIABETICS [Concomitant]
  4. THYROID PREPARATIONS [Concomitant]

REACTIONS (2)
  - ALOPECIA [None]
  - GALLBLADDER DISORDER [None]
